FAERS Safety Report 4893206-9 (Version None)
Quarter: 2006Q1

REPORT INFORMATION
  Report Type: 
  Country: None (occurrence: None)
  Receive Date: 20060127
  Receipt Date: 20060111
  Transmission Date: 20060701
  Serious: Yes (Hospitalization)
  Sender: FDA-Public Use
  Company Number: ZA-BOEHRINGER INGELHEIM PHARMACEUTICALS, INC.-2006-DE-00193ZA

PATIENT
  Sex: Female

DRUGS (4)
  1. CO-MICARDIS [Suspect]
     Indication: HYPERTENSION
     Route: 048
     Dates: start: 20040701, end: 20060101
  2. CONTROLOC [Concomitant]
  3. SPIRIVA [Concomitant]
  4. PREMARIN [Concomitant]

REACTIONS (3)
  - BLOOD PRESSURE INCREASED [None]
  - PHONOPHOBIA [None]
  - TRANSIENT ISCHAEMIC ATTACK [None]
